FAERS Safety Report 10056746 (Version 2)
Quarter: 2014Q2

REPORT INFORMATION
  Report Type: Spontaneous
  Country: US (occurrence: US)
  Receive Date: 20140403
  Receipt Date: 20140624
  Transmission Date: 20141212
  Serious: Yes (Death)
  Sender: FDA-Public Use
  Company Number: US-GLAXOSMITHKLINE-A1066912A

PATIENT
  Age: 51 Year
  Sex: Female

DRUGS (13)
  1. TYKERB [Suspect]
     Indication: LUNG NEOPLASM MALIGNANT
     Dosage: 1250MG PER DAY
     Dates: start: 20131104
  2. XELODA [Concomitant]
  3. AZOPT [Concomitant]
  4. ASPIRIN [Concomitant]
  5. SPIRONOLACTONE [Concomitant]
  6. PANTOPRAZOLE [Concomitant]
  7. BUMETANIDE [Concomitant]
  8. SIMVASTATIN [Concomitant]
  9. CALCITROL [Concomitant]
  10. LEVEMIR [Concomitant]
  11. ALPHAGAN [Concomitant]
  12. LUMIGAN [Concomitant]
  13. LORTAB [Concomitant]

REACTIONS (1)
  - Death [Fatal]
